FAERS Safety Report 7138103-3 (Version None)
Quarter: 2010Q4

REPORT INFORMATION
  Report Type: 
  Country: None (occurrence: None)
  Receive Date: 20101103
  Receipt Date: 20100601
  Transmission Date: 20110411
  Serious: Yes (Other)
  Sender: FDA-Public Use
  Company Number: US-WYE-H15467710

PATIENT
  Age: 49 Year
  Sex: Female
  Weight: 112.14 kg

DRUGS (8)
  1. EFFEXOR XR [Suspect]
     Indication: ANXIETY
     Dosage: 75 MG 1X PER DAY, 150 MG 1X PER 1 DAY, 75 MG 1X PER 1 DAY
     Dates: start: 20090101, end: 20100501
  2. EFFEXOR XR [Suspect]
     Indication: DEPRESSION
     Dosage: 75 MG 1X PER DAY, 150 MG 1X PER 1 DAY, 75 MG 1X PER 1 DAY
     Dates: start: 20090101, end: 20100501
  3. EFFEXOR XR [Suspect]
     Indication: ANXIETY
     Dosage: 75 MG 1X PER DAY, 150 MG 1X PER 1 DAY, 75 MG 1X PER 1 DAY
     Dates: start: 20030101
  4. EFFEXOR XR [Suspect]
     Indication: DEPRESSION
     Dosage: 75 MG 1X PER DAY, 150 MG 1X PER 1 DAY, 75 MG 1X PER 1 DAY
     Dates: start: 20030101
  5. ARIMIDEX [Suspect]
     Indication: BREAST CANCER
     Dates: start: 20030101
  6. VENLAFAXINE HCL [Suspect]
     Dosage: 37.5 MG 1X PER 1 DAY, 37.5 MG EVERY OTHER DAY ALTERNATING WITH 75 MG EVERY OTHER DAY
     Dates: start: 20100501, end: 20100501
  7. VENLAFAXINE HCL [Suspect]
     Dosage: 37.5 MG 1X PER 1 DAY, 37.5 MG EVERY OTHER DAY ALTERNATING WITH 75 MG EVERY OTHER DAY
     Dates: start: 20100501, end: 20100501
  8. SOMA COMPOUND (ACETYLSALICYLIC [Concomitant]

REACTIONS (11)
  - ANXIETY [None]
  - ATTENTION DEFICIT/HYPERACTIVITY DISORDER [None]
  - BLOOD CHOLESTEROL INCREASED [None]
  - CONDITION AGGRAVATED [None]
  - DRUG WITHDRAWAL SYNDROME [None]
  - HOT FLUSH [None]
  - HYPERHIDROSIS [None]
  - HYPERTENSION [None]
  - INSOMNIA [None]
  - NAUSEA [None]
  - PARAESTHESIA [None]
